FAERS Safety Report 14126698 (Version 1)
Quarter: 2017Q4

REPORT INFORMATION
  Report Type: Spontaneous
  Country: US (occurrence: US)
  Receive Date: 20171025
  Receipt Date: 20171025
  Transmission Date: 20180321
  Serious: No
  Sender: FDA-Public Use
  Company Number: US-SHIRE-US201726594

PATIENT
  Age: 37 Year
  Sex: Female
  Weight: 86.17 kg

DRUGS (1)
  1. GAMMAGARD LIQUID [Suspect]
     Active Substance: HUMAN IMMUNOGLOBULIN G
     Indication: CHRONIC INFLAMMATORY DEMYELINATING POLYRADICULONEUROPATHY
     Dosage: 42 G, 1X/DAY:QD
     Route: 042
     Dates: start: 201710

REACTIONS (2)
  - Chest discomfort [Unknown]
  - Paraesthesia [Unknown]
